FAERS Safety Report 18315849 (Version 2)
Quarter: 2021Q1

REPORT INFORMATION
  Report Type: Other
  Country: CA (occurrence: CA)
  Receive Date: 20200927
  Receipt Date: 20210215
  Transmission Date: 20210419
  Serious: Yes (Other)
  Sender: FDA-Public Use
  Company Number: CA-CELLTRION INC.-2020CA026640

PATIENT

DRUGS (13)
  1. PREDNISONE. [Suspect]
     Active Substance: PREDNISONE
     Indication: PRODUCT USED FOR UNKNOWN INDICATION
     Route: 065
  2. CALCIUM [Concomitant]
     Active Substance: CALCIUM
  3. METHYLPREDNISOLONE. [Concomitant]
     Active Substance: METHYLPREDNISOLONE
     Indication: PREMEDICATION
     Dosage: 100 MG
     Route: 042
  4. ZOPICLONE [Concomitant]
     Active Substance: ZOPICLONE
  5. ACETAMINOPHEN. [Concomitant]
     Active Substance: ACETAMINOPHEN
     Indication: PREMEDICATION
     Dosage: 650 MG
     Route: 048
  6. DIPHENHYDRAMINE. [Concomitant]
     Active Substance: DIPHENHYDRAMINE
     Indication: PREMEDICATION
     Dosage: 50 MG
     Route: 048
  7. SYNTHROID [Concomitant]
     Active Substance: LEVOTHYROXINE SODIUM
  8. ATIVAN [Concomitant]
     Active Substance: LORAZEPAM
  9. PREGABALIN. [Concomitant]
     Active Substance: PREGABALIN
  10. AZATHIOPRINE. [Concomitant]
     Active Substance: AZATHIOPRINE
  11. WARFARIN [Concomitant]
     Active Substance: WARFARIN
  12. RITUXIMAB (UNKNOWN) [Suspect]
     Active Substance: RITUXIMAB
     Indication: MYELITIS TRANSVERSE
     Dosage: 1000 MG
     Route: 042
  13. GRAVOL [Concomitant]
     Active Substance: DIMENHYDRINATE

REACTIONS (5)
  - Intentional product use issue [Unknown]
  - Myelitis transverse [Unknown]
  - Off label use [Unknown]
  - Weight increased [Unknown]
  - Asthenia [Unknown]
